FAERS Safety Report 8755787 (Version 3)
Quarter: 2012Q4

REPORT INFORMATION
  Report Type: Report from Study
  Country: KR (occurrence: KR)
  Receive Date: 20120827
  Receipt Date: 20121022
  Transmission Date: 20130627
  Serious: Yes (Hospitalization)
  Sender: FDA-Public Use
  Company Number: KR-ROCHE-1089318

PATIENT
  Age: 78 Year
  Sex: Female
  Weight: 43.6 kg

DRUGS (19)
  1. RITUXIMAB [Suspect]
     Indication: MALIGNANT LYMPHOID NEOPLASM
     Dosage: Last dose prior to SAE: 3/Aug/2012
     Route: 042
     Dates: start: 20120706
  2. RITUXIMAB [Suspect]
     Dosage: Last dose prior to SAE: 14/Sep/2012
     Route: 042
     Dates: start: 20120906
  3. ADRIAMYCIN [Suspect]
     Indication: MALIGNANT LYMPHOID NEOPLASM
     Dosage: Last dose prior to SAE:3/Aug/2012
     Route: 042
     Dates: start: 20120706
  4. ADRIAMYCIN [Suspect]
     Dosage: Last dose prior to SAE:14/Sep/2012
     Route: 042
     Dates: start: 20120706
  5. PREDNISOLON [Suspect]
     Indication: MALIGNANT LYMPHOID NEOPLASM
     Dosage: Last dose prior to SAE: 18/Sep/2012
     Route: 048
     Dates: start: 20120706
  6. CYCLOPHOSPHAMIDE [Suspect]
     Indication: MALIGNANT LYMPHOID NEOPLASM
     Dosage: Last dose prior to SAE:3/Aug/2012
     Route: 042
     Dates: start: 20120706
  7. CYCLOPHOSPHAMIDE [Suspect]
     Dosage: dose reduced
     Route: 065
     Dates: start: 20120803
  8. CYCLOPHOSPHAMIDE [Suspect]
     Dosage: Last dose prior to SAE: 14/Sep/2012
     Route: 042
     Dates: start: 20120906
  9. VINCRISTIN [Suspect]
     Indication: MALIGNANT LYMPHOID NEOPLASM
     Dosage: Last dose prior to SAE:3/Aug/2012
     Route: 042
     Dates: start: 20120706
  10. VINCRISTIN [Suspect]
     Dosage: Last dose prior to SAE: 14/Sep/2012
     Route: 042
     Dates: start: 20120706
  11. TARGIN [Concomitant]
     Route: 065
     Dates: start: 20120627
  12. FUROSEMIDE [Concomitant]
     Route: 065
  13. BISOPROLOL [Concomitant]
     Route: 065
  14. VALSARTAN [Concomitant]
     Route: 065
  15. ATORVASTATIN [Concomitant]
     Route: 065
  16. ARTEMISIA [Concomitant]
     Route: 065
  17. ROPINIROLE [Concomitant]
     Route: 065
  18. IBUDILAST [Concomitant]
     Route: 065
  19. ALLOPURINOL [Concomitant]
     Route: 065
     Dates: start: 20120627

REACTIONS (3)
  - Neutrophil count decreased [Recovered/Resolved]
  - Hypophagia [Recovered/Resolved]
  - Neutrophil count decreased [Recovered/Resolved]
